FAERS Safety Report 6516856-2 (Version None)
Quarter: 2009Q4

REPORT INFORMATION
  Report Type: 
  Country: None (occurrence: None)
  Receive Date: 20091223
  Receipt Date: 20091211
  Transmission Date: 20100525
  Serious: Yes (Other)
  Sender: FDA-Public Use
  Company Number: FR-JNJFOC-20091204602

PATIENT
  Age: 68 Year
  Sex: Male

DRUGS (1)
  1. HALDOL [Suspect]
     Indication: DRUG USE FOR UNKNOWN INDICATION
     Route: 065
     Dates: start: 19900101

REACTIONS (4)
  - BALANCE DISORDER [None]
  - BLINDNESS [None]
  - SEXUAL DYSFUNCTION [None]
  - TREMOR [None]
